FAERS Safety Report 6341691-8 (Version None)
Quarter: 2009Q3

REPORT INFORMATION
  Report Type: 
  Country: None (occurrence: None)
  Receive Date: 20090904
  Receipt Date: 20090825
  Transmission Date: 20100115
  Serious: Yes (Hospitalization)
  Sender: FDA-Public Use
  Company Number: CA-NOVOPROD-290950

PATIENT
  Age: 42 Year
  Sex: Female

DRUGS (1)
  1. NOVOLIN GE 30/70 PENFILL [Suspect]

REACTIONS (3)
  - BLOOD INSULIN INCREASED [None]
  - HYPOGLYCAEMIC COMA [None]
  - INTENTIONAL OVERDOSE [None]
